FAERS Safety Report 14680002 (Version 2)
Quarter: 2018Q2

REPORT INFORMATION
  Report Type: Spontaneous
  Country: NL (occurrence: NL)
  Receive Date: 20180326
  Receipt Date: 20180627
  Transmission Date: 20180711
  Serious: Yes (Other)
  Sender: FDA-Public Use
  Company Number: NL-TEVA-2018-NL-873089

PATIENT
  Age: 74 Year
  Sex: Male

DRUGS (7)
  1. FOLIUMZUUR [Concomitant]
     Active Substance: FOLIC ACID
     Dosage: 5MG, VOLGENS SCHEMA
     Dates: start: 20100422
  2. OMEPRAZOL [Concomitant]
     Active Substance: OMEPRAZOLE
     Dosage: 40 MILLIGRAM DAILY; 40MG, 1X/D
     Route: 065
  3. NAPROXEN. [Concomitant]
     Active Substance: NAPROXEN
     Dosage: 500MG, ZN
  4. SALMETEROL/FLUTICASON. [Concomitant]
     Dosage: ONBEKEND, ONBEKEND
  5. METHOTREXATE. [Suspect]
     Active Substance: METHOTREXATE
     Indication: RHEUMATOID ARTHRITIS
     Dosage: 25MG, 1X/W
     Dates: start: 20150626, end: 20180112
  6. D-CURA [Concomitant]
     Dosage: 25000IE, 1X/2W
  7. SULFASALAZINE. [Concomitant]
     Active Substance: SULFASALAZINE
     Dosage: 1000MG, 2X/D
     Dates: start: 20161125

REACTIONS (1)
  - Respiratory tract infection [Recovering/Resolving]

NARRATIVE: CASE EVENT DATE: 20171228
